FAERS Safety Report 8770859 (Version 1)
Quarter: 2012Q4

REPORT INFORMATION
  Report Type: 
  Country: US (occurrence: US)
  Receive Date: 20120906
  Receipt Date: 20120906
  Transmission Date: 20130627
  Serious: No
  Sender: FDA-Public Use
  Company Number: US-B.I. PHARMACEUTICALS,INC./RIDGEFIELD-2012-BP-21333BP

PATIENT
  Age: 66 Year
  Sex: Male

DRUGS (6)
  1. ZANTAC (RANITIDINE HYDROCHLORIDE) [Suspect]
     Indication: DYSPEPSIA
     Route: 048
     Dates: start: 20120819, end: 20120830
  2. LEVOXYL [Concomitant]
     Indication: HYPOTHYROIDISM
     Dosage: 112 mcg
     Route: 048
     Dates: start: 1997
  3. AMOXICLAV [Concomitant]
     Indication: ASTHMA
     Dates: start: 1997
  4. METHYLPREDNISOLONE BURST [Concomitant]
     Indication: ASTHMA
     Route: 048
     Dates: start: 1997
  5. ALLOPURINOL [Concomitant]
     Indication: GOUT
     Dates: start: 1997
  6. ADVAIR [Concomitant]
     Indication: ASTHMA
     Route: 055
     Dates: start: 2002

REACTIONS (11)
  - Pain [Recovered/Resolved]
  - Pain [Recovered/Resolved]
  - Pyrexia [Recovered/Resolved]
  - Pyrexia [Recovered/Resolved]
  - Asthenia [Recovered/Resolved]
  - Asthenia [Recovered/Resolved]
  - Arthralgia [Recovered/Resolved]
  - Arthralgia [Recovered/Resolved]
  - Mobility decreased [Recovered/Resolved]
  - Mobility decreased [Recovered/Resolved]
  - Tremor [Recovered/Resolved]
